FAERS Safety Report 8374422-0 (Version None)
Quarter: 2012Q2

REPORT INFORMATION
  Report Type: 
  Country: None (occurrence: None)
  Receive Date: 20120521
  Receipt Date: 20120510
  Transmission Date: 20120825
  Serious: Yes (Disabling)
  Sender: FDA-Public Use
  Company Number: FR-ASTRAZENECA-2012SE30899

PATIENT
  Age: 68 Year
  Sex: Female

DRUGS (2)
  1. IRBESARTAN [Concomitant]
     Indication: HYPERTENSION
  2. CRESTOR [Suspect]
     Route: 048
     Dates: start: 20110101, end: 20120401

REACTIONS (3)
  - MYALGIA [None]
  - MUSCLE SPASMS [None]
  - ARTHRALGIA [None]
